FAERS Safety Report 10387146 (Version 2)
Quarter: 2014Q3

REPORT INFORMATION
  Report Type: Spontaneous
  Country: BR (occurrence: BR)
  Receive Date: 20140815
  Receipt Date: 20140821
  Transmission Date: 20150326
  Serious: Yes (Hospitalization)
  Sender: FDA-Public Use
  Company Number: BR-PFIZER INC-2014226332

PATIENT
  Age: 70 Year
  Sex: Male
  Weight: 78 kg

DRUGS (9)
  1. FRONTAL [Suspect]
     Active Substance: ALPRAZOLAM
     Indication: ANXIETY
     Dosage: 0.5 MG (ONE TABLET), ONCE A DAY
     Route: 048
  2. IVABRADINE [Concomitant]
     Active Substance: IVABRADINE
     Indication: CARDIOVASCULAR EVENT PROPHYLAXIS
     Dosage: TWO TABLETS, DAILY
  3. COLCHICINE. [Concomitant]
     Active Substance: COLCHICINE
     Indication: GOUT
     Dosage: 2 TABLETS, DAILY
  4. ALDACTONE [Concomitant]
     Active Substance: SPIRONOLACTONE
     Indication: URINARY TRACT DISORDER
     Dosage: ONE TABLET, DAILY
  5. ASPIRINA [Concomitant]
     Active Substance: ASPIRIN
     Indication: PERIPHERAL VASCULAR DISORDER
     Dosage: 100 MG (ONE TABLET), UNSPECIFIED FREQUENCY
  6. CARVEDILOL. [Concomitant]
     Active Substance: CARVEDILOL
     Indication: CARDIAC DISORDER
     Dosage: 2 TABLETS DAILY
  7. OMEPRAZOLE. [Concomitant]
     Active Substance: OMEPRAZOLE
     Indication: GASTRITIS PROPHYLAXIS
     Dosage: 20 MG (ONE TABLET), DAILY
  8. BRILINTA [Concomitant]
     Active Substance: TICAGRELOR
     Indication: CARDIOVASCULAR EVENT PROPHYLAXIS
     Dosage: TWO TABLETS, ONCE A DAY
  9. ENALAPRIL [Concomitant]
     Active Substance: ENALAPRIL
     Indication: BLOOD PRESSURE ABNORMAL
     Dosage: TWO TABLETS, DAILY

REACTIONS (1)
  - Cardiac disorder [Unknown]
